FAERS Safety Report 8490039-1 (Version None)
Quarter: 2012Q2

REPORT INFORMATION
  Report Type: 
  Country: None (occurrence: None)
  Receive Date: 20120626
  Receipt Date: 20120614
  Transmission Date: 20120825
  Serious: Yes (Death)
  Sender: FDA-Public Use
  Company Number: 2012AL000058

PATIENT
  Age: 53 Year
  Sex: Male
  Weight: 93.4 kg

DRUGS (11)
  1. MIRACLE MOUTH WASH [Concomitant]
  2. ONDANSETRON [Concomitant]
  3. LORTAB [Concomitant]
  4. ACETAMINOPHEN [Concomitant]
  5. MORPHINE [Concomitant]
  6. SIMETHICONE [Concomitant]
  7. LORAZEPAM [Concomitant]
  8. FOLOTYN [Suspect]
     Indication: PERIPHERAL T-CELL LYMPHOMA UNSPECIFIED
     Dosage: 40 MG;QW;IV
     Route: 042
     Dates: start: 20120423, end: 20120530
  9. COLACE [Concomitant]
  10. PROCHLORPERAZINE [Concomitant]
  11. AMBIEN [Concomitant]

REACTIONS (6)
  - HYPERKALAEMIA [None]
  - SEPSIS [None]
  - TUMOUR LYSIS SYNDROME [None]
  - HYPERURICAEMIA [None]
  - FEBRILE NEUTROPENIA [None]
  - RENAL FAILURE ACUTE [None]
